FAERS Safety Report 7885268-1 (Version None)
Quarter: 2011Q4

REPORT INFORMATION
  Report Type: 
  Country: None (occurrence: None)
  Receive Date: 20111102
  Receipt Date: 20111025
  Transmission Date: 20120403
  Serious: Yes (Other)
  Sender: FDA-Public Use
  Company Number: CHPA2011US14700

PATIENT
  Age: 68 Year
  Sex: Female

DRUGS (2)
  1. EXCEDRIN (MIGRAINE) [Suspect]
     Dosage: 4-6 DF, QD
     Route: 048
  2. EXCEDRIN (MIGRAINE) [Suspect]
     Indication: HEADACHE
     Dosage: 1 DF, BID
     Route: 048
     Dates: start: 20110901

REACTIONS (9)
  - SPINAL COLUMN INJURY [None]
  - EYE MOVEMENT DISORDER [None]
  - UNDERDOSE [None]
  - DRUG INEFFECTIVE [None]
  - DIPLOPIA [None]
  - INAPPROPRIATE SCHEDULE OF DRUG ADMINISTRATION [None]
  - OVERDOSE [None]
  - SINUS HEADACHE [None]
  - EYE PAIN [None]
